APPROVED DRUG PRODUCT: CAPECITABINE
Active Ingredient: CAPECITABINE
Strength: 500MG
Dosage Form/Route: TABLET;ORAL
Application: A091649 | Product #002 | TE Code: AB
Applicant: TEVA PHARMACEUTICALS USA INC
Approved: Sep 16, 2013 | RLD: No | RS: No | Type: RX